FAERS Safety Report 7031462-1 (Version None)
Quarter: 2010Q4

REPORT INFORMATION
  Report Type: 
  Country: None (occurrence: None)
  Receive Date: 20101006
  Receipt Date: 20100927
  Transmission Date: 20110411
  Serious: Yes (Other)
  Sender: FDA-Public Use
  Company Number: US-PFIZER INC-2010110623

PATIENT
  Sex: Male

DRUGS (5)
  1. LYRICA [Suspect]
     Indication: SPINAL FRACTURE
     Dosage: 75 MG, AS NEEDED
     Route: 048
  2. LYRICA [Suspect]
     Indication: BONE PAIN
  3. LYRICA [Suspect]
     Indication: NERVE INJURY
  4. LISINOPRIL [Suspect]
     Indication: HYPERTENSION
     Dosage: UNK
  5. METOPROLOL [Suspect]
     Indication: HYPERTENSION
     Dosage: UNK

REACTIONS (2)
  - HYPERTENSION [None]
  - HYPOTENSION [None]
